FAERS Safety Report 7790485-5 (Version None)
Quarter: 2011Q3

REPORT INFORMATION
  Report Type: 
  Country: None (occurrence: None)
  Receive Date: 20110930
  Receipt Date: 20110920
  Transmission Date: 20111222
  Serious: Yes (Hospitalization, Other)
  Sender: FDA-Public Use
  Company Number: PHHY2011JP81358

PATIENT
  Age: 69 Year
  Sex: Male

DRUGS (11)
  1. ASPIRIN [Concomitant]
     Dosage: UNK
     Route: 048
  2. LIPITOR [Concomitant]
     Dosage: UNK
     Route: 048
  3. ENALAPRIL MALEATE [Concomitant]
     Dosage: UNK
     Route: 048
  4. ALDACTONE [Concomitant]
     Dosage: UNK
     Route: 048
  5. RASILEZ [Suspect]
     Indication: HYPERTENSION
     Dosage: 150 MG, DAILY
     Route: 048
     Dates: start: 20110901, end: 20110915
  6. BISOPROLOL FUMARATE [Concomitant]
     Dosage: UNK
     Route: 048
  7. CALBLOCK [Suspect]
     Dosage: 16 MG, DAILY
     Route: 048
  8. LANSOPRAZOLE [Suspect]
     Dosage: 30 MG, DAILY
     Route: 048
  9. SULFAMETHOXAZOLE [Concomitant]
     Dosage: UNK
     Route: 048
  10. FOSAMAX [Concomitant]
     Dosage: 5 MG, UNK
     Route: 048
  11. ZANTAC [Concomitant]
     Dosage: UNK
     Route: 048

REACTIONS (1)
  - INTERSTITIAL LUNG DISEASE [None]
